FAERS Safety Report 12481532 (Version 1)
Quarter: 2016Q2

REPORT INFORMATION
  Report Type: Spontaneous
  Country: US (occurrence: US)
  Receive Date: 20160620
  Receipt Date: 20160620
  Transmission Date: 20160815
  Serious: Yes (Other)
  Sender: FDA-Public Use
  Company Number: US-APOTEX-2016AP009212

PATIENT
  Sex: Female

DRUGS (1)
  1. PAXIL [Suspect]
     Active Substance: PAROXETINE HYDROCHLORIDE
     Indication: ANXIETY
     Dosage: DOSE/STRENGTH:  40 MG
     Dates: start: 2006

REACTIONS (9)
  - Underdose [Unknown]
  - Inability to afford medication [Not Recovered/Not Resolved]
  - Exposure during pregnancy [Unknown]
  - Drug dependence, antepartum [Unknown]
  - Wrong technique in product usage process [Unknown]
  - Drug dose omission [Not Recovered/Not Resolved]
  - Drug dependence [Not Recovered/Not Resolved]
  - Emergency care [Unknown]
  - Anxiety [Unknown]
